FAERS Safety Report 5190724-3 (Version None)
Quarter: 2006Q4

REPORT INFORMATION
  Report Type: 
  Country: None (occurrence: None)
  Receive Date: 20061215
  Receipt Date: 20061024
  Transmission Date: 20070319
  Serious: Yes (Hospitalization)
  Sender: FDA-Public Use
  Company Number: 2006VX002113

PATIENT
  Age: 59 Year
  Sex: Female
  Weight: 66.2252 kg

DRUGS (3)
  1. CESAMET [Suspect]
     Indication: ANTIEMETIC SUPPORTIVE CARE
     Dosage: 2 MG; BID; PO
     Route: 048
     Dates: start: 20061017, end: 20061017
  2. DEXAMETHASONE [Concomitant]
  3. ALOXI [Concomitant]

REACTIONS (4)
  - BACTERAEMIA [None]
  - BLOOD PRESSURE INCREASED [None]
  - CATHETER RELATED INFECTION [None]
  - SEPSIS [None]
